FAERS Safety Report 17678632 (Version 3)
Quarter: 2025Q1

REPORT INFORMATION
  Report Type: Report from Study
  Country: CA (occurrence: CA)
  Receive Date: 20200417
  Receipt Date: 20250225
  Transmission Date: 20250408
  Serious: Yes (Hospitalization)
  Sender: TAKEDA
  Company Number: CA-TAKEDA-2019TUS001000

PATIENT
  Age: 52 Year
  Sex: Male

DRUGS (4)
  1. VEDOLIZUMAB [Suspect]
     Active Substance: VEDOLIZUMAB
     Indication: Colitis ulcerative
  2. VEDOLIZUMAB [Suspect]
     Active Substance: VEDOLIZUMAB
  3. VEDOLIZUMAB [Suspect]
     Active Substance: VEDOLIZUMAB
  4. VEDOLIZUMAB [Suspect]
     Active Substance: VEDOLIZUMAB

REACTIONS (6)
  - Hyperthermia [Unknown]
  - COVID-19 [Recovered/Resolved]
  - Nasal congestion [Unknown]
  - Cough [Not Recovered/Not Resolved]
  - Bronchitis [Unknown]
  - Influenza [Unknown]

NARRATIVE: CASE EVENT DATE: 20200113
